FAERS Safety Report 8612338 (Version 2)
Quarter: 2013Q1

REPORT INFORMATION
  Report Type: Spontaneous
  Country: US (occurrence: US)
  Receive Date: 20120613
  Receipt Date: 20130219
  Transmission Date: 20140127
  Serious: Yes (Hospitalization, Other)
  Sender: FDA-Public Use
  Company Number: US-PFIZER INC-2012136208

PATIENT
  Age: 64 Year
  Sex: Female
  Weight: 64.85 kg

DRUGS (11)
  1. LIPITOR [Suspect]
     Dosage: UNK
  2. ALLI [Suspect]
     Indication: WEIGHT LOSS DIET
     Dosage: UNK
     Route: 048
     Dates: start: 200803, end: 201204
  3. ALLI [Suspect]
     Indication: WEIGHT DECREASED
     Dosage: UNK
     Dates: start: 200901
  4. ALLI [Suspect]
     Dosage: UNK, 1X/DAY (IN THE EVENING WITH DINNER)
  5. RALOXIFENE HYDROCHLORIDE [Concomitant]
  6. IBANDRONATE SODIUM [Concomitant]
  7. FENOFIBRIC ACID [Concomitant]
  8. OMEPRAZOLE [Concomitant]
     Dosage: UNK
  9. EVISTA [Concomitant]
     Dosage: UNK
  10. BONIVA [Concomitant]
     Dosage: UNK
  11. TRILIPIX [Concomitant]
     Dosage: UNK

REACTIONS (23)
  - Diverticulitis [Recovered/Resolved]
  - Renal cancer [Recovered/Resolved]
  - Bladder cancer [Recovered/Resolved]
  - Ureteric cancer [Unknown]
  - Transitional cell cancer of the renal pelvis and ureter [Unknown]
  - Bladder neoplasm [Recovered/Resolved]
  - Renal neoplasm [Recovered/Resolved]
  - Ureterectomy [Unknown]
  - Nephrectomy [Unknown]
  - Colectomy [Unknown]
  - Alanine aminotransferase [Recovered/Resolved]
  - Aspartate aminotransferase [Recovered/Resolved]
  - Hepatic enzyme increased [Recovered/Resolved]
  - Treatment noncompliance [Not Recovered/Not Resolved]
  - Rectal discharge [Unknown]
  - Abdominal pain [Unknown]
  - Abdominal pain upper [Unknown]
  - Defaecation urgency [Not Recovered/Not Resolved]
  - Constipation [Unknown]
  - Diverticulum [Unknown]
  - Condition aggravated [Unknown]
  - Pain [Unknown]
  - Haematuria [Recovered/Resolved]
